FAERS Safety Report 21037501 (Version 8)
Quarter: 2022Q3

REPORT INFORMATION
  Report Type: Report from Study
  Country: TW (occurrence: None)
  Receive Date: 20220703
  Receipt Date: 20220930
  Transmission Date: 20221027
  Serious: Yes (Hospitalization)
  Sender: FDA-Public Use
  Company Number: TW-ROCHE-3123726

PATIENT
  Age: 51 Year
  Sex: Male
  Weight: 90.6 kg

DRUGS (59)
  1. RITUXIMAB [Suspect]
     Active Substance: RITUXIMAB
     Indication: Diffuse large B-cell lymphoma
     Dosage: ON 07/JUL/2022, HE HAD MOST RECENT DOSE OF STUDY DRUG 776.3 MG PRIOR TO AE/SAE
     Route: 041
     Dates: start: 20220616
  2. GEMCITABINE [Suspect]
     Active Substance: GEMCITABINE
     Indication: Diffuse large B-cell lymphoma
     Dosage: ON 08/JUL/2022, HE HAD MOST RECENT DOSE OF STUDY DRUG 2070 MG PRIOR TO AE/SAE
     Route: 042
     Dates: start: 20220617
  3. OXALIPLATIN [Suspect]
     Active Substance: OXALIPLATIN
     Indication: Diffuse large B-cell lymphoma
     Dosage: ON 08/JUL/2022, HE HAD MOST RECENT DOSE OF STUDY DRUG 207 MG PRIOR TO AE/SAE
     Route: 042
     Dates: start: 20220617
  4. DEXAMETHASONE [Concomitant]
     Active Substance: DEXAMETHASONE
     Indication: Premedication
     Dates: start: 20220616, end: 20220616
  5. DEXAMETHASONE [Concomitant]
     Active Substance: DEXAMETHASONE
     Dates: start: 20220707, end: 20220707
  6. DEXAMETHASONE [Concomitant]
     Active Substance: DEXAMETHASONE
     Route: 042
     Dates: start: 20220617, end: 20220617
  7. DEXAMETHASONE [Concomitant]
     Active Substance: DEXAMETHASONE
     Route: 042
     Dates: start: 20220708, end: 20220708
  8. ENTECAVIR [Concomitant]
     Active Substance: ENTECAVIR
     Indication: Hepatitis B
     Route: 048
     Dates: start: 20211209
  9. EXFORGE [Concomitant]
     Active Substance: AMLODIPINE BESYLATE\VALSARTAN
     Indication: Hypertension
     Route: 048
     Dates: start: 20220412, end: 20220622
  10. EXFORGE [Concomitant]
     Active Substance: AMLODIPINE BESYLATE\VALSARTAN
     Route: 048
     Dates: start: 20220627
  11. LORAZEPAM [Concomitant]
     Active Substance: LORAZEPAM
     Indication: Insomnia
     Route: 048
     Dates: start: 20211202, end: 20220622
  12. LORAZEPAM [Concomitant]
     Active Substance: LORAZEPAM
     Route: 048
     Dates: start: 20220628
  13. CONSLIFE [Concomitant]
     Indication: Constipation
     Route: 048
     Dates: start: 20220611, end: 20220622
  14. CONSLIFE [Concomitant]
     Route: 048
     Dates: start: 20220628, end: 20220717
  15. ACETAMINOPHEN [Concomitant]
     Active Substance: ACETAMINOPHEN
     Indication: Pyrexia
     Route: 048
     Dates: start: 20220613, end: 20220618
  16. ACETAMINOPHEN [Concomitant]
     Active Substance: ACETAMINOPHEN
     Indication: Tumour pain
     Route: 048
     Dates: start: 20220616, end: 20220616
  17. ACETAMINOPHEN [Concomitant]
     Active Substance: ACETAMINOPHEN
     Route: 048
     Dates: start: 20220629, end: 20220707
  18. ACETAMINOPHEN [Concomitant]
     Active Substance: ACETAMINOPHEN
     Route: 048
     Dates: start: 20220711
  19. BISACODYL [Concomitant]
     Active Substance: BISACODYL
     Indication: Constipation
     Route: 054
     Dates: start: 20220613, end: 20220613
  20. CODEINE PHOSPHATE [Concomitant]
     Active Substance: CODEINE PHOSPHATE
     Indication: Prophylaxis
     Route: 042
     Dates: start: 20220615, end: 20220617
  21. DIPHENHYDRAMINE HYDROCHLORIDE [Concomitant]
     Active Substance: DIPHENHYDRAMINE HYDROCHLORIDE
     Route: 042
     Dates: start: 20220616, end: 20220616
  22. DIPHENHYDRAMINE HYDROCHLORIDE [Concomitant]
     Active Substance: DIPHENHYDRAMINE HYDROCHLORIDE
     Route: 048
     Dates: start: 20220616, end: 20220616
  23. DIPHENHYDRAMINE HYDROCHLORIDE [Concomitant]
     Active Substance: DIPHENHYDRAMINE HYDROCHLORIDE
     Route: 042
     Dates: start: 20220725, end: 20220725
  24. LACTULOSE [Concomitant]
     Active Substance: LACTULOSE
     Indication: Constipation
     Route: 048
     Dates: start: 20220618, end: 20220622
  25. ONDANSETRON [Concomitant]
     Active Substance: ONDANSETRON
     Indication: Premedication
     Route: 042
     Dates: start: 20220617, end: 20220617
  26. ONDANSETRON [Concomitant]
     Active Substance: ONDANSETRON
     Route: 042
     Dates: start: 20220708, end: 20220708
  27. LENOGRASTIM [Concomitant]
     Active Substance: LENOGRASTIM
     Indication: Blood disorder prophylaxis
     Dosage: 250 OTHER
     Route: 058
     Dates: start: 20220619, end: 20220625
  28. LENOGRASTIM [Concomitant]
     Active Substance: LENOGRASTIM
     Dosage: 250 OTHER
     Route: 058
     Dates: start: 20220709, end: 20220709
  29. CEFEPIME [Concomitant]
     Active Substance: CEFEPIME HYDROCHLORIDE
     Indication: Sepsis
     Dosage: MEDICATION ONGOING:NO
     Route: 042
     Dates: start: 20220622, end: 20220628
  30. CEFEPIME [Concomitant]
     Active Substance: CEFEPIME HYDROCHLORIDE
     Dosage: MEDICATION ONGOING:NO
     Route: 042
     Dates: start: 20220711, end: 20220721
  31. CEFEPIME [Concomitant]
     Active Substance: CEFEPIME HYDROCHLORIDE
     Route: 042
     Dates: start: 20220623, end: 20220628
  32. TEICOPLANIN [Concomitant]
     Active Substance: TEICOPLANIN
     Indication: Sepsis
     Dosage: MEDICATION ONGOING:YES
     Route: 042
     Dates: start: 20220622, end: 20220628
  33. NOREPINEPHRINE [Concomitant]
     Active Substance: NOREPINEPHRINE
     Indication: Sepsis
     Route: 042
     Dates: start: 20220622, end: 20220623
  34. LOPERAMIDE [Concomitant]
     Active Substance: LOPERAMIDE
     Indication: Diarrhoea
     Route: 048
     Dates: start: 20220622
  35. RASBURICASE [Concomitant]
     Active Substance: RASBURICASE
     Indication: Tumour lysis syndrome
     Route: 042
     Dates: end: 20220623
  36. CALCIUM CARBONATE [Concomitant]
     Active Substance: CALCIUM CARBONATE
     Indication: Tumour lysis syndrome
     Route: 048
     Dates: start: 20220623, end: 20220630
  37. OXYCODONE [Concomitant]
     Active Substance: OXYCODONE
     Indication: Tumour pain
     Route: 048
     Dates: start: 20220615, end: 20220625
  38. DICLOFENAC POTASSIUM [Concomitant]
     Active Substance: DICLOFENAC POTASSIUM
     Indication: Tumour pain
     Route: 048
     Dates: start: 20220615, end: 20220623
  39. UTRAPHEN [Concomitant]
     Indication: Tumour pain
     Route: 048
     Dates: start: 20220620, end: 20220629
  40. UTRAPHEN [Concomitant]
     Route: 048
     Dates: start: 20220707, end: 20220723
  41. CYPROHEPTADINE HYDROCHLORIDE [Concomitant]
     Active Substance: CYPROHEPTADINE HYDROCHLORIDE
     Indication: Rash pruritic
     Route: 048
     Dates: start: 20220620, end: 20220622
  42. CYPROHEPTADINE HYDROCHLORIDE [Concomitant]
     Active Substance: CYPROHEPTADINE HYDROCHLORIDE
     Route: 048
     Dates: start: 20220704, end: 20220706
  43. FLUOCINONIDE [Concomitant]
     Active Substance: FLUOCINONIDE
     Route: 061
     Dates: start: 20220620, end: 20220627
  44. SENNOSIDES A AND B [Concomitant]
     Active Substance: SENNOSIDES A AND B
     Indication: Constipation
     Route: 048
     Dates: start: 20220627, end: 20220628
  45. CIPROFLOXACIN HYDROCHLORIDE [Concomitant]
     Active Substance: CIPROFLOXACIN HYDROCHLORIDE
     Indication: Prophylaxis
     Route: 048
     Dates: start: 20220628
  46. PREDNISOLONE [Concomitant]
     Active Substance: PREDNISOLONE
     Route: 048
     Dates: start: 20220704, end: 20220706
  47. COTRIMOXAZOLE [Concomitant]
     Active Substance: SULFAMETHOXAZOLE\TRIMETHOPRIM
     Route: 048
     Dates: start: 20220711
  48. LENOGRASTIM [Concomitant]
     Active Substance: LENOGRASTIM
     Route: 058
     Dates: start: 20220711, end: 20220711
  49. LENOGRASTIM [Concomitant]
     Active Substance: LENOGRASTIM
     Route: 058
     Dates: start: 20220714, end: 20220714
  50. POTASSIUM GLUCONATE [Concomitant]
     Active Substance: POTASSIUM GLUCONATE
     Route: 048
     Dates: start: 20220718, end: 20220720
  51. NAPROXEN [Concomitant]
     Active Substance: NAPROXEN
     Route: 048
     Dates: start: 20220720, end: 20220722
  52. TEICOPLANIN [Concomitant]
     Active Substance: TEICOPLANIN
     Route: 042
     Dates: start: 20220720, end: 20220721
  53. TEICOPLANIN [Concomitant]
     Active Substance: TEICOPLANIN
     Route: 042
     Dates: start: 20220721
  54. TRAMADOL [Concomitant]
     Active Substance: TRAMADOL
     Route: 048
     Dates: start: 20220723
  55. PIPERACILLIN SODIUM\TAZOBACTAM SODIUM [Concomitant]
     Active Substance: PIPERACILLIN SODIUM\TAZOBACTAM SODIUM
  56. METHOTREXATE [Concomitant]
     Active Substance: METHOTREXATE
  57. VINCRISTINE [Concomitant]
     Active Substance: VINCRISTINE
  58. DOXORUBICIN [Concomitant]
     Active Substance: DOXORUBICIN
  59. CYCLOPHOSPHAMIDE [Concomitant]
     Active Substance: CYCLOPHOSPHAMIDE

REACTIONS (2)
  - Septic shock [Recovered/Resolved]
  - Febrile neutropenia [Recovered/Resolved]

NARRATIVE: CASE EVENT DATE: 20220622
